FAERS Safety Report 14024728 (Version 1)
Quarter: 2017Q3

REPORT INFORMATION
  Report Type: Report from Study
  Country: MA (occurrence: MA)
  Receive Date: 20170929
  Receipt Date: 20170929
  Transmission Date: 20171128
  Serious: Yes (Death)
  Sender: FDA-Public Use
  Company Number: MA-TOLMAR, INC.-2017MA013106

PATIENT
  Sex: Male

DRUGS (1)
  1. ELIGARD [Suspect]
     Active Substance: LEUPROLIDE ACETATE
     Indication: PROSTATE CANCER
     Dosage: 45 MG, PER 6 MONTHS
     Route: 058
     Dates: start: 20160525

REACTIONS (1)
  - Death [Fatal]
